FAERS Safety Report 4488115-3 (Version None)
Quarter: 2004Q4

REPORT INFORMATION
  Report Type: 
  Country: None (occurrence: None)
  Receive Date: 20041025
  Receipt Date: 20041018
  Transmission Date: 20050328
  Serious: Yes (Hospitalization)
  Sender: FDA-Public Use
  Company Number: 2004-09-1428

PATIENT
  Age: 45 Year
  Sex: Female

DRUGS (14)
  1. TRILAFON [Suspect]
     Indication: PSYCHOTIC DISORDER
     Dosage: 12-40MG QD ORAL
     Route: 048
     Dates: start: 19940101, end: 20010101
  2. CISORDINOL [Concomitant]
  3. RIVOTRIL [Concomitant]
  4. DISIPAL [Concomitant]
  5. ZYPREXA [Concomitant]
  6. IMOVANE [Concomitant]
  7. NOZINAN [Concomitant]
  8. ZOLOFT [Concomitant]
  9. RISPERDAL [Concomitant]
  10. EFFEXOR [Concomitant]
  11. SEROQUEL (QUETIAPINE FUMURATE) [Concomitant]
  12. REMERON [Concomitant]
  13. VALLERGAN [Concomitant]
  14. SOLIAN [Concomitant]

REACTIONS (14)
  - CONSTIPATION [None]
  - DRY MOUTH [None]
  - FATIGUE [None]
  - FEELING ABNORMAL [None]
  - METABOLIC DISORDER [None]
  - MUSCULOSKELETAL PAIN [None]
  - OEDEMA [None]
  - PAIN [None]
  - RED BLOOD CELL SEDIMENTATION RATE INCREASED [None]
  - SCHIZOPHRENIA, PARANOID TYPE [None]
  - TACHYCARDIA [None]
  - TOOTH DISORDER [None]
  - TREATMENT NONCOMPLIANCE [None]
  - WEIGHT INCREASED [None]
